FAERS Safety Report 16541958 (Version 2)
Quarter: 2019Q3

REPORT INFORMATION
  Report Type: Spontaneous
  Country: FR (occurrence: FR)
  Receive Date: 20190708
  Receipt Date: 20190731
  Transmission Date: 20191004
  Serious: Yes (Other)
  Sender: FDA-Public Use
  Company Number: FR-MYLANLABS-2019M1063272

PATIENT
  Age: 7 Week
  Sex: Male

DRUGS (1)
  1. ACICLOVIR MYLAN 200 MG TABLETTEN [Suspect]
     Active Substance: ACYCLOVIR
     Indication: GENITAL HERPES
     Dosage: 5 TABLETS DAILY

REACTIONS (7)
  - Exposure via breast milk [Unknown]
  - Dyspnoea [Not Recovered/Not Resolved]
  - Malaise [Not Recovered/Not Resolved]
  - Crying [Not Recovered/Not Resolved]
  - Vomiting [Not Recovered/Not Resolved]
  - Regurgitation [Not Recovered/Not Resolved]
  - Wheezing [Not Recovered/Not Resolved]

NARRATIVE: CASE EVENT DATE: 20190626
